FAERS Safety Report 7607025-3 (Version None)
Quarter: 2011Q3

REPORT INFORMATION
  Report Type: 
  Country: None (occurrence: None)
  Receive Date: 20110706
  Receipt Date: 20110620
  Transmission Date: 20111222
  Serious: Yes (Death)
  Sender: FDA-Public Use
  Company Number: CIO11011397

PATIENT
  Sex: Male

DRUGS (1)
  1. BISMUTH SUBSALICYLATE [Suspect]
     Dosage: 1 DF, ORAL
     Route: 048

REACTIONS (1)
  - OVERDOSE [None]
